FAERS Safety Report 7878359-2 (Version None)
Quarter: 2011Q4

REPORT INFORMATION
  Report Type: 
  Country: None (occurrence: None)
  Receive Date: 20111101
  Receipt Date: 20111024
  Transmission Date: 20120403
  Serious: Yes (Other)
  Sender: FDA-Public Use
  Company Number: US-US-EMD SERONO, INC.-7091775

PATIENT
  Sex: Female

DRUGS (2)
  1. ALEVE [Concomitant]
     Indication: PREMEDICATION
  2. REBIF [Suspect]
     Indication: PRODUCT USED FOR UNKNOWN INDICATION
     Route: 058
     Dates: start: 20091012

REACTIONS (4)
  - HAEMORRHOIDS [None]
  - CENTRAL NERVOUS SYSTEM LESION [None]
  - INJECTION SITE PAIN [None]
  - DIVERTICULITIS [None]
